FAERS Safety Report 9639511 (Version 1)
Quarter: 2013Q4

REPORT INFORMATION
  Report Type: Spontaneous
  Country: ZA (occurrence: ZA)
  Receive Date: 20131023
  Receipt Date: 20131023
  Transmission Date: 20140711
  Serious: Yes (Hospitalization)
  Sender: FDA-Public Use
  Company Number: ZA-009507513-1310ZAF007592

PATIENT
  Age: 47 Year
  Sex: Female
  Weight: 80 kg

DRUGS (4)
  1. ESMERON [Suspect]
     Dosage: 6 MG/KG, 50MG
  2. CIPROL (CIPROFIBRATE) [Concomitant]
  3. PERFALGAN [Concomitant]
  4. PROPOFOL [Concomitant]
     Indication: CHOLECYSTECTOMY

REACTIONS (1)
  - Neuromuscular blockade [Recovered/Resolved]
